FAERS Safety Report 8217343-6 (Version None)
Quarter: 2012Q1

REPORT INFORMATION
  Report Type: 
  Country: None (occurrence: None)
  Receive Date: 20120315
  Receipt Date: 20120305
  Transmission Date: 20120608
  Serious: Yes (Other)
  Sender: FDA-Public Use
  Company Number: 2012P1008984

PATIENT
  Age: 60 Year
  Sex: Female
  Weight: 76.6579 kg

DRUGS (2)
  1. PRISTIQ [Concomitant]
  2. DEXTROAMPHETAMINE SACCHARATE, SUFATE/AMPHETAMINE ASPARTATE, SULFATE [Suspect]
     Indication: ATTENTION DEFICIT/HYPERACTIVITY DISORDER
     Dosage: 30 MG;BID;PO
     Route: 048
     Dates: start: 20120126, end: 20120127

REACTIONS (3)
  - SWOLLEN TONGUE [None]
  - SWELLING FACE [None]
  - LIP SWELLING [None]
